FAERS Safety Report 6493305-4 (Version None)
Quarter: 2009Q4

REPORT INFORMATION
  Report Type: 
  Country: None (occurrence: None)
  Receive Date: 20091214
  Receipt Date: 20091201
  Transmission Date: 20100525
  Serious: Yes (Hospitalization)
  Sender: FDA-Public Use
  Company Number: US-ROCHE-673401

PATIENT
  Sex: Female
  Weight: 71.9 kg

DRUGS (12)
  1. BEVACIZUMAB [Suspect]
     Indication: NON-SMALL CELL LUNG CANCER
     Dosage: 15 MG/KG, Q21D
     Route: 042
     Dates: start: 20091013
  2. PEMETREXED [Suspect]
     Indication: NON-SMALL CELL LUNG CANCER
     Dosage: 500 MG/M2, Q21D
     Route: 042
     Dates: start: 20091013
  3. CARBOPLATIN [Suspect]
     Indication: NON-SMALL CELL LUNG CANCER
     Dosage: 6 AUC, Q21D
     Route: 042
     Dates: start: 20091013
  4. ASPIRIN [Concomitant]
     Indication: PROPHYLAXIS
     Dosage: 81 MG, UNK
     Dates: start: 20091007
  5. METOPROLOL [Concomitant]
     Dosage: UNK
     Dates: start: 19990101
  6. OMEPRAZOLE [Concomitant]
     Dosage: UNK
     Dates: start: 20090801
  7. DONEPEZIL HCL [Concomitant]
     Dosage: UNK
     Dates: start: 20090801
  8. CLONAZEPAM [Concomitant]
     Indication: TENSION HEADACHE
     Dosage: UNK
     Dates: start: 20090901
  9. METOCLOPRAMIDE [Concomitant]
     Indication: DRUG USE FOR UNKNOWN INDICATION
     Dosage: UNK
     Dates: start: 20091106
  10. FOLIC ACID [Concomitant]
     Indication: DRUG USE FOR UNKNOWN INDICATION
     Dosage: UNK
     Dates: start: 20091006
  11. LIPITOR [Concomitant]
     Indication: DRUG USE FOR UNKNOWN INDICATION
     Dosage: UNK
  12. VITAMIN B-12 [Concomitant]
     Indication: DRUG USE FOR UNKNOWN INDICATION

REACTIONS (2)
  - CEREBRAL ISCHAEMIA [None]
  - OCULAR VASCULAR DISORDER [None]
